FAERS Safety Report 4720543-0 (Version None)
Quarter: 2005Q3

REPORT INFORMATION
  Report Type: 
  Country: None (occurrence: None)
  Receive Date: 20050719
  Receipt Date: 20050705
  Transmission Date: 20060218
  Serious: Yes (Hospitalization)
  Sender: FDA-Public Use
  Company Number: 2005-01403

PATIENT

DRUGS (1)
  1. INTEGRILIN [Suspect]
     Dosage: IV BOLUS
     Route: 040

REACTIONS (2)
  - CHILLS [None]
  - THROMBOCYTOPENIA [None]
